FAERS Safety Report 16211198 (Version 1)
Quarter: 2019Q2

REPORT INFORMATION
  Report Type: Report from Study
  Country: DE (occurrence: DE)
  Receive Date: 20190418
  Receipt Date: 20190418
  Transmission Date: 20190711
  Serious: Yes (Hospitalization)
  Sender: FDA-Public Use
  Company Number: DE-ROCHE-2213027

PATIENT
  Age: 74 Year
  Sex: Male
  Weight: 96 kg

DRUGS (9)
  1. BISOPROLOL [Concomitant]
     Active Substance: BISOPROLOL
     Indication: HYPERTENSION
     Route: 048
     Dates: start: 20170314
  2. ENALAPRIL [Concomitant]
     Active Substance: ENALAPRIL
     Indication: PROPHYLAXIS
     Route: 048
     Dates: start: 20170314
  3. DEXAMETHASON [Concomitant]
     Active Substance: DEXAMETHASONE
     Indication: PROPHYLAXIS
     Route: 048
     Dates: start: 20180817, end: 20180827
  4. FERRO SANOL [Concomitant]
     Active Substance: FERROUS GLYCINE SULFATE
     Indication: PROPHYLAXIS
     Dosage: ONGOING
     Route: 048
     Dates: start: 20180705
  5. VEMURAFENIB. [Suspect]
     Active Substance: VEMURAFENIB
     Indication: MALIGNANT MELANOMA
     Route: 048
     Dates: start: 20180810
  6. COBIMETINIB. [Suspect]
     Active Substance: COBIMETINIB
     Indication: MALIGNANT MELANOMA
     Route: 048
     Dates: start: 20180810
  7. PANTOPRAZOL [Concomitant]
     Active Substance: PANTOPRAZOLE SODIUM
     Indication: PROPHYLAXIS
     Route: 048
     Dates: start: 20180705
  8. MEMANTINE. [Concomitant]
     Active Substance: MEMANTINE
     Indication: PROPHYLAXIS
     Route: 048
     Dates: start: 20180705
  9. FOLIC ACID. [Concomitant]
     Active Substance: FOLIC ACID
     Indication: PROPHYLAXIS
     Dosage: ONGOING
     Route: 048
     Dates: start: 20180705

REACTIONS (4)
  - Hypotension [Recovered/Resolved]
  - Anaemia [Recovering/Resolving]
  - Anaemia [Recovering/Resolving]
  - Neck pain [Recovered/Resolved]

NARRATIVE: CASE EVENT DATE: 20180814
